FAERS Safety Report 18571467 (Version 1)
Quarter: 2020Q4

REPORT INFORMATION
  Report Type: Spontaneous
  Country: US (occurrence: US)
  Receive Date: 20201202
  Receipt Date: 20201202
  Transmission Date: 20210114
  Serious: Yes (Other)
  Sender: FDA-Public Use
  Company Number: NVSC2020US319906

PATIENT
  Age: 59 Year
  Sex: Female

DRUGS (2)
  1. MITOMYCIN C [Concomitant]
     Active Substance: MITOMYCIN
     Indication: GLAUCOMA
     Dosage: UNK
     Route: 065
  2. TRIAMCINOLONE [Suspect]
     Active Substance: TRIAMCINOLONE
     Indication: GLAUCOMA
     Dosage: UNK, SUBTENONS
     Route: 065

REACTIONS (5)
  - Eye infection toxoplasmal [Recovering/Resolving]
  - Blindness [Unknown]
  - Eye pain [Unknown]
  - Product use in unapproved indication [Unknown]
  - Vitreous floaters [Unknown]
